FAERS Safety Report 4498831-5 (Version None)
Quarter: 2004Q4

REPORT INFORMATION
  Report Type: 
  Country: None (occurrence: None)
  Receive Date: 20041108
  Receipt Date: 20041026
  Transmission Date: 20050328
  Serious: Yes (Death)
  Sender: FDA-Public Use
  Company Number: 167-20785-04100038

PATIENT
  Age: 67 Year
  Sex: Male

DRUGS (12)
  1. THALOMID [Suspect]
     Indication: SMALL CELL LUNG CANCER STAGE UNSPECIFIED
     Dosage: SEE IMAGE
     Route: 048
     Dates: start: 20040708, end: 20040910
  2. CARBOPLATIN [Suspect]
     Indication: SMALL CELL LUNG CANCER STAGE UNSPECIFIED
     Dosage: 655 MG, DAILY, INTRAVENOUS
     Route: 042
     Dates: start: 20040906, end: 20040906
  3. ETOPOSIDE [Suspect]
     Indication: SMALL CELL LUNG CANCER STAGE UNSPECIFIED
     Dosage: SEE IMAGE
     Route: 042
     Dates: start: 20040906, end: 20040906
  4. ETOPOSIDE [Suspect]
     Indication: SMALL CELL LUNG CANCER STAGE UNSPECIFIED
     Dosage: SEE IMAGE
     Route: 042
     Dates: start: 20040907, end: 20040908
  5. QUININE SULFATE (QUININE SULFATE) [Concomitant]
  6. DIHYDROCODEINE TARTRATE (DIHYDROCODEINE TARTRATE) [Concomitant]
  7. CO-DYDRAMOL (PARAMOL-118) [Concomitant]
  8. DICLOFENAC SODIUM [Concomitant]
  9. VENTOLIN [Concomitant]
  10. SERETIDE (SERETIDE ^ALLEN + HANGBURYS LTD^) [Concomitant]
  11. BENDROFLUAZIDE (BENDROFLUMETHIAZIDE) [Concomitant]
  12. IPRATROPIUM BROMIDE (IPTRATROPIUM BROMIDE) [Concomitant]

REACTIONS (6)
  - CIRCULATORY COLLAPSE [None]
  - EMPHYSEMA [None]
  - HYPERTENSIVE HEART DISEASE [None]
  - MALIGNANT NEOPLASM PROGRESSION [None]
  - MYOCARDIAL ISCHAEMIA [None]
  - SMALL CELL LUNG CANCER METASTATIC [None]
